FAERS Safety Report 8567382-0 (Version None)
Quarter: 2012Q3

REPORT INFORMATION
  Report Type: 
  Country: None (occurrence: None)
  Receive Date: 20120803
  Receipt Date: 20120801
  Transmission Date: 20120928
  Serious: Yes (Other)
  Sender: FDA-Public Use
  Company Number: PHEH2012US015103

PATIENT
  Sex: Female
  Weight: 65 kg

DRUGS (3)
  1. AFINITOR [Suspect]
     Dosage: 7.5 MG, QD
     Route: 048
  2. AFINITOR [Suspect]
     Dosage: 10 MG, QD
     Route: 048
     Dates: end: 20120730
  3. AFINITOR [Suspect]
     Indication: BREAST CANCER
     Dosage: 10 MG, QD
     Route: 048
     Dates: start: 20120503

REACTIONS (3)
  - PNEUMONITIS [None]
  - ANAL FISSURE [None]
  - STOMATITIS [None]
